FAERS Safety Report 11914683 (Version 1)
Quarter: 2016Q1

REPORT INFORMATION
  Report Type: Other
  Country: US (occurrence: US)
  Receive Date: 20160113
  Receipt Date: 20160113
  Transmission Date: 20160526
  Serious: Yes (Hospitalization, Other)
  Sender: FDA-Public Use
  Company Number: US-SHIRE-US201600034

PATIENT
  Sex: Female
  Weight: 45.81 kg

DRUGS (1)
  1. GATTEX [Suspect]
     Active Substance: TEDUGLUTIDE\WATER
     Indication: SHORT-BOWEL SYNDROME
     Dosage: 0.22 ML, 1X/DAY:QD
     Route: 058
     Dates: start: 20140514

REACTIONS (2)
  - Hospitalisation [Unknown]
  - Drug dose omission [Unknown]
